FAERS Safety Report 6969386-8 (Version None)
Quarter: 2010Q3

REPORT INFORMATION
  Report Type: 
  Country: None (occurrence: None)
  Receive Date: 20100902
  Receipt Date: 20100819
  Transmission Date: 20110219
  Serious: Yes (Other)
  Sender: FDA-Public Use
  Company Number: 2010080062

PATIENT
  Age: 67 Year

DRUGS (1)
  1. TORSEMIDE [Suspect]
     Dosage: 0.48 MG/KG/DAY; 1.42 MG/KG/DAY

REACTIONS (1)
  - BLOOD POTASSIUM INCREASED [None]
